FAERS Safety Report 7108984-8 (Version None)
Quarter: 2010Q4

REPORT INFORMATION
  Report Type: 
  Country: None (occurrence: None)
  Receive Date: 20101117
  Receipt Date: 20101109
  Transmission Date: 20110411
  Serious: Yes (Death, Hospitalization, Other)
  Sender: FDA-Public Use
  Company Number: PHHY2010JP66946

PATIENT
  Sex: Male

DRUGS (14)
  1. AFINITOR [Suspect]
     Indication: METASTATIC RENAL CELL CARCINOMA
     Dosage: 10 MG DAILY
     Route: 048
     Dates: start: 20100728, end: 20100810
  2. INTERFERON ALFA [Concomitant]
     Indication: METASTATIC RENAL CELL CARCINOMA
     Dosage: 3000000 IU
     Dates: start: 20100609, end: 20100628
  3. TECELEUKIN [Concomitant]
     Indication: METASTATIC RENAL CELL CARCINOMA
     Dosage: 1400000 IU
     Dates: start: 20100610, end: 20100706
  4. ZOMETA [Concomitant]
     Indication: METASTATIC RENAL CELL CARCINOMA
     Route: 041
  5. OXINORM [Concomitant]
     Indication: METASTATIC RENAL CELL CARCINOMA
     Dosage: 2.5MG
     Route: 048
  6. LOXONIN [Concomitant]
     Indication: METASTATIC RENAL CELL CARCINOMA
     Dosage: 180MG
     Route: 048
  7. SELBEX [Concomitant]
     Dosage: 150MG
     Route: 048
  8. DUROTEP JANSSEN [Concomitant]
     Indication: METASTATIC RENAL CELL CARCINOMA
     Dosage: 0.7MG
     Route: 062
  9. PLETAL [Concomitant]
     Dosage: 100MG
     Route: 048
  10. 8-HOUR BAYER [Concomitant]
     Dosage: 100MG
     Route: 048
  11. HYPEN [Concomitant]
     Indication: METASTATIC RENAL CELL CARCINOMA
     Dosage: 400MG
     Route: 048
     Dates: start: 20100805
  12. ASPIRIN [Concomitant]
     Dosage: 1 DF
     Route: 048
     Dates: start: 20100815, end: 20100815
  13. OMEPRAL [Concomitant]
     Dosage: 20MG
     Route: 041
     Dates: start: 20100816, end: 20100824
  14. TAKEPRON [Concomitant]
     Dosage: 15MG
     Route: 048
     Dates: start: 20100825

REACTIONS (7)
  - ANAEMIA [None]
  - CONDITION AGGRAVATED [None]
  - DEATH [None]
  - DECREASED APPETITE [None]
  - INTERSTITIAL LUNG DISEASE [None]
  - LYMPHOCYTE COUNT DECREASED [None]
  - RADIATION PNEUMONITIS [None]
